FAERS Safety Report 6924006-3 (Version None)
Quarter: 2010Q3

REPORT INFORMATION
  Report Type: 
  Country: None (occurrence: None)
  Receive Date: 20100813
  Receipt Date: 20100802
  Transmission Date: 20110219
  Serious: Yes (Death, Life-Threatening, Hospitalization, Other)
  Sender: FDA-Public Use
  Company Number: US-GENZYME-CLOF-1000984

PATIENT
  Sex: Female
  Weight: 26 kg

DRUGS (5)
  1. CLOFARABINE [Suspect]
     Indication: ACUTE LYMPHOCYTIC LEUKAEMIA
     Dosage: 32 MG, QD
     Route: 042
     Dates: start: 20100514, end: 20100518
  2. ETOPOSIDE [Suspect]
     Indication: ACUTE LYMPHOCYTIC LEUKAEMIA
     Dosage: 80 MG, QD
     Route: 042
     Dates: start: 20100514, end: 20100518
  3. CYCLOPHOSPHAMIDE [Suspect]
     Indication: ACUTE LYMPHOCYTIC LEUKAEMIA
     Dosage: 350 MG, QD
     Dates: start: 20100514, end: 20100518
  4. ACYCLOVIR [Concomitant]
     Indication: PROPHYLAXIS
     Dosage: 800 MG, UNK
     Route: 042
     Dates: start: 20100515, end: 20100519
  5. ACYCLOVIR [Concomitant]
     Indication: INFECTION

REACTIONS (6)
  - BONE MARROW FAILURE [None]
  - CARDIAC FAILURE CONGESTIVE [None]
  - ENTEROCOCCAL BACTERAEMIA [None]
  - FUNGAL INFECTION [None]
  - FUNGAL SKIN INFECTION [None]
  - PNEUMONIA FUNGAL [None]
